FAERS Safety Report 13902118 (Version 1)
Quarter: 2017Q3

REPORT INFORMATION
  Report Type: Spontaneous
  Country: US (occurrence: US)
  Receive Date: 20170824
  Receipt Date: 20170824
  Transmission Date: 20171127
  Serious: No
  Sender: FDA-Public Use
  Company Number: US-ROCHE-753432

PATIENT
  Age: 73 Year
  Sex: Female

DRUGS (7)
  1. XELODA [Suspect]
     Active Substance: CAPECITABINE
     Indication: GASTRIC CANCER
     Route: 048
  2. HERCEPTIN [Suspect]
     Active Substance: TRASTUZUMAB
     Dosage: THIS IS THE MAINTENANCE DOSE.
     Route: 042
  3. HERCEPTIN [Suspect]
     Active Substance: TRASTUZUMAB
     Indication: GASTRIC CANCER
     Dosage: THIS IS THE LOADING DOSE.DOSAGE FORM REPORTED AS INFUSION.
     Route: 042
  4. ALEXITOL SODIUM [Concomitant]
     Dosage: DRUG REPORTED AS ALEXI
     Route: 065
  5. DECADRON [Concomitant]
     Active Substance: DEXAMETHASONE
     Route: 065
  6. CISPLATIN. [Concomitant]
     Active Substance: CISPLATIN
     Route: 065
  7. EMEND [Concomitant]
     Active Substance: APREPITANT
     Route: 065

REACTIONS (2)
  - Diverticulitis [Unknown]
  - Vomiting [Unknown]

NARRATIVE: CASE EVENT DATE: 20101129
